FAERS Safety Report 24302972 (Version 4)
Quarter: 2024Q4

REPORT INFORMATION
  Report Type: Spontaneous
  Country: US (occurrence: CA)
  Receive Date: 20240910
  Receipt Date: 20241028
  Transmission Date: 20250114
  Serious: Yes (Other)
  Sender: INCYTE
  Company Number: US-INCYTE CORPORATION-2024IN009401

PATIENT

DRUGS (3)
  1. PEMAZYRE [Suspect]
     Active Substance: PEMIGATINIB
     Indication: Glioblastoma multiforme
     Dosage: 13.5 MILLIGRAM, 14 DAYS ON AND 7 DAYS OFF
     Route: 048
     Dates: start: 20240506, end: 202408
  2. PEMAZYRE [Suspect]
     Active Substance: PEMIGATINIB
     Dosage: 13.5 MILLIGRAM, QD
     Route: 048
     Dates: start: 20240529
  3. PEMAZYRE [Suspect]
     Active Substance: PEMIGATINIB
     Dosage: 13.5 MILLIGRAM, 14 DAYS ON AND 7 DAYS OFF
     Route: 048
     Dates: start: 20240531

REACTIONS (4)
  - Hepatotoxicity [Unknown]
  - Glioblastoma multiforme [Not Recovered/Not Resolved]
  - Disease progression [Not Recovered/Not Resolved]
  - Off label use [Unknown]

NARRATIVE: CASE EVENT DATE: 20240506
